FAERS Safety Report 10111206 (Version 1)
Quarter: 2014Q2

REPORT INFORMATION
  Report Type: Spontaneous
  Country: US (occurrence: US)
  Receive Date: 20140425
  Receipt Date: 20140425
  Transmission Date: 20141212
  Serious: Yes (Hospitalization)
  Sender: FDA-Public Use
  Company Number: US-JNJFOC-20140413855

PATIENT
  Age: 73 Year
  Sex: Female
  Weight: 108 kg

DRUGS (3)
  1. XARELTO [Suspect]
     Indication: CEREBROVASCULAR ACCIDENT PROPHYLAXIS
     Route: 048
     Dates: start: 20130905, end: 20130916
  2. XARELTO [Suspect]
     Indication: ATRIAL FIBRILLATION
     Route: 048
     Dates: start: 20130905, end: 20130916
  3. CLOPIDOGREL [Concomitant]
     Route: 065

REACTIONS (4)
  - Basal ganglia stroke [Recovering/Resolving]
  - Atrial fibrillation [Recovering/Resolving]
  - Fall [Unknown]
  - Loss of consciousness [Recovering/Resolving]
